FAERS Safety Report 8540519-5 (Version None)
Quarter: 2012Q3

REPORT INFORMATION
  Report Type: 
  Country: None (occurrence: None)
  Receive Date: 20120726
  Receipt Date: 20110801
  Transmission Date: 20120928
  Serious: No
  Sender: FDA-Public Use
  Company Number: US-ASTRAZENECA-2011SE45848

PATIENT
  Age: 49 Year
  Sex: Female
  Weight: 65.8 kg

DRUGS (3)
  1. PROZAC [Concomitant]
  2. SEROQUEL XR [Suspect]
     Indication: BIPOLAR DISORDER
     Route: 048
     Dates: start: 20030101
  3. XANAX [Concomitant]

REACTIONS (7)
  - DRUG DEPENDENCE [None]
  - AMNESIA [None]
  - INSOMNIA [None]
  - MUSCULAR WEAKNESS [None]
  - FEELING JITTERY [None]
  - MOOD SWINGS [None]
  - DRUG DOSE OMISSION [None]
